FAERS Safety Report 6673843-1 (Version None)
Quarter: 2010Q2

REPORT INFORMATION
  Report Type: 
  Country: None (occurrence: None)
  Receive Date: 20100407
  Receipt Date: 20100331
  Transmission Date: 20101027
  Serious: Yes (Death, Hospitalization)
  Sender: FDA-Public Use
  Company Number: 2010SP016053

PATIENT
  Age: 67 Year
  Sex: Female

DRUGS (7)
  1. ORGARAN [Suspect]
     Indication: HEPARIN-INDUCED THROMBOCYTOPENIA
     Dosage: 1000 DF; BID; SC
     Route: 058
     Dates: start: 20100217, end: 20100312
  2. ORGARAN [Suspect]
     Indication: RENAL FAILURE
     Dosage: 1000 DF; BID; SC
     Route: 058
     Dates: start: 20100217, end: 20100312
  3. HYDROCORTISONE [Concomitant]
  4. RANITIDINE [Concomitant]
  5. PARACETAMOL [Concomitant]
  6. ONDANSETRON [Concomitant]
  7. AMIODARON /00133101/ [Concomitant]

REACTIONS (4)
  - INTESTINAL HAEMORRHAGE [None]
  - INTESTINAL PERFORATION [None]
  - PERITONITIS [None]
  - PNEUMONIA [None]
